FAERS Safety Report 4972210-6 (Version None)
Quarter: 2006Q2

REPORT INFORMATION
  Report Type: 
  Country: None (occurrence: None)
  Receive Date: 20060413
  Receipt Date: 20060404
  Transmission Date: 20061013
  Serious: Yes (Other)
  Sender: FDA-Public Use
  Company Number: JP-JPN-A200601156

PATIENT
  Age: 31 Year
  Sex: Male

DRUGS (3)
  1. PAXIL [Suspect]
     Indication: DEPRESSION
     Dosage: 20MG PER DAY
     Route: 048
  2. DEPAS [Concomitant]
     Route: 048
  3. BENZALIN [Concomitant]
     Route: 048

REACTIONS (1)
  - AGGRESSION [None]
